FAERS Safety Report 21753169 (Version 1)
Quarter: 2022Q4

REPORT INFORMATION
  Report Type: Spontaneous
  Country: US (occurrence: None)
  Receive Date: 20221219
  Receipt Date: 20221219
  Transmission Date: 20230113
  Serious: No
  Sender: FDA-Public Use
  Company Number: None

PATIENT
  Age: 69 Year
  Sex: Male
  Weight: 134.9 kg

DRUGS (16)
  1. ABIRATERONE ACETATE [Suspect]
     Active Substance: ABIRATERONE ACETATE
     Indication: Prostate cancer
     Dosage: FREQUENCY : DAILY;?
     Route: 048
  2. PREDNISONE [Suspect]
     Active Substance: PREDNISONE
     Indication: Prostate cancer
  3. ACTIGALL [Concomitant]
  4. ALLOPURINOL [Concomitant]
  5. BACTRIM DS [Concomitant]
  6. COLCHICINE [Concomitant]
  7. ELIGARD [Concomitant]
  8. ELIQUIS [Concomitant]
  9. FISH OIL [Concomitant]
  10. FLUOROUNRACIL EXTERNAL CREAM [Concomitant]
  11. LAGEVRIO [Concomitant]
  12. METOPROLOL SUCCINATE ER [Concomitant]
  13. PROTONIX [Concomitant]
  14. VITAMIN B12 [Concomitant]
  15. VITAMIN C [Concomitant]
  16. VITAMIN D3 [Concomitant]

REACTIONS (1)
  - COVID-19 [None]
